FAERS Safety Report 8194282-0 (Version None)
Quarter: 2012Q1

REPORT INFORMATION
  Report Type: 
  Country: None (occurrence: None)
  Receive Date: 20120308
  Receipt Date: 20120229
  Transmission Date: 20120608
  Serious: Yes (Other)
  Sender: FDA-Public Use
  Company Number: US-JNJFOC-20120301808

PATIENT

DRUGS (1)
  1. REMICADE [Suspect]
     Indication: SPONDYLOARTHROPATHY
     Route: 042

REACTIONS (1)
  - SWEAT GLAND TUMOUR [None]
